FAERS Safety Report 8535120-3 (Version None)
Quarter: 2012Q3

REPORT INFORMATION
  Report Type: 
  Country: None (occurrence: None)
  Receive Date: 20120724
  Receipt Date: 20120719
  Transmission Date: 20120928
  Serious: Yes (Life-Threatening)
  Sender: FDA-Public Use
  Company Number: JP-PFIZER INC-2012175167

PATIENT
  Age: 78 Year

DRUGS (7)
  1. EXFORGE [Concomitant]
     Indication: HYPERTENSION
     Route: 048
  2. VITAMIN B12 [Concomitant]
     Indication: NEUROPATHY PERIPHERAL
     Route: 048
  3. LYRICA [Suspect]
     Indication: NEURALGIA
     Dosage: 150 MG, 1X/DAY
     Route: 048
     Dates: start: 20120714, end: 20120719
  4. POLYFUL [Concomitant]
  5. MERISLON [Concomitant]
     Indication: MENIERE'S DISEASE
     Dosage: UNK
     Route: 048
  6. GASCON [Concomitant]
     Indication: GASTRITIS
     Route: 048
  7. LIPITOR [Concomitant]
     Indication: HYPERLIPIDAEMIA
     Dosage: UNK
     Route: 048

REACTIONS (2)
  - CARDIAC ARREST [None]
  - URINARY INCONTINENCE [None]
